FAERS Safety Report 5576419-2 (Version None)
Quarter: 2007Q4

REPORT INFORMATION
  Report Type: 
  Country: None (occurrence: None)
  Receive Date: 20071228
  Receipt Date: 20071228
  Transmission Date: 20080405
  Serious: Yes (Hospitalization)
  Sender: FDA-Public Use
  Company Number: ES-BRISTOL-MYERS SQUIBB COMPANY-14026074

PATIENT
  Age: 64 Year
  Sex: Female

DRUGS (1)
  1. VIDEX [Suspect]

REACTIONS (1)
  - OSTEONECROSIS [None]
